FAERS Safety Report 7513586-5 (Version None)
Quarter: 2011Q2

REPORT INFORMATION
  Report Type: 
  Country: None (occurrence: None)
  Receive Date: 20110531
  Receipt Date: 20110519
  Transmission Date: 20111010
  Serious: Yes (Hospitalization, Other)
  Sender: FDA-Public Use
  Company Number: US-BAYER-2011-045878

PATIENT
  Age: 31 Year
  Sex: Female
  Weight: 71.2 kg

DRUGS (6)
  1. YAZ [Suspect]
     Indication: PELVIC PAIN
  2. YAZ [Suspect]
     Indication: MENORRHAGIA
  3. LEXAPRO [Concomitant]
     Dosage: 2.5 MG, QD
  4. YAZ [Suspect]
     Indication: OVARIAN CYST
     Dosage: UNK
     Dates: start: 20071101, end: 20071228
  5. YAZ [Suspect]
     Indication: DYSMENORRHOEA
  6. MULTI-VITAMIN [Concomitant]
     Dosage: UNK UNK, QD

REACTIONS (5)
  - PULMONARY EMBOLISM [None]
  - IRRITABILITY [None]
  - CHEST PAIN [None]
  - DYSPNOEA [None]
  - WEIGHT DECREASED [None]
